FAERS Safety Report 11069180 (Version 1)
Quarter: 2015Q2

REPORT INFORMATION
  Report Type: Spontaneous
  Country: US (occurrence: US)
  Receive Date: 20150427
  Receipt Date: 20150427
  Transmission Date: 20150821
  Serious: No
  Sender: FDA-Public Use
  Company Number: US-009507513-1504USA020924

PATIENT
  Sex: Female

DRUGS (1)
  1. COPPERTONE [Suspect]
     Active Substance: OCTINOXATE\OCTOCRYLENE
     Indication: SUNBURN
     Dosage: UNK
     Route: 061
     Dates: start: 201504, end: 20150415

REACTIONS (2)
  - Eye irritation [Unknown]
  - Expired product administered [Unknown]

NARRATIVE: CASE EVENT DATE: 201504
